FAERS Safety Report 9830500 (Version 1)
Quarter: 2014Q1

REPORT INFORMATION
  Report Type: Spontaneous
  Country: US (occurrence: US)
  Receive Date: 20140120
  Receipt Date: 20140120
  Transmission Date: 20141002
  Serious: Yes (Death)
  Sender: FDA-Public Use
  Company Number: US-PFIZER INC-2014008210

PATIENT
  Age: 32 Year
  Sex: Male

DRUGS (5)
  1. DEXTROMETHORPHAN HBR [Suspect]
     Route: 048
  2. BUPROPION [Suspect]
     Route: 048
  3. DIPHENHYDRAMINE [Suspect]
     Route: 048
  4. DOXYLAMINE [Suspect]
     Route: 048
  5. CITALOPRAM [Suspect]
     Route: 048

REACTIONS (1)
  - Completed suicide [Fatal]
